FAERS Safety Report 7717121-8 (Version None)
Quarter: 2011Q3

REPORT INFORMATION
  Report Type: 
  Country: None (occurrence: None)
  Receive Date: 20110826
  Receipt Date: 20110826
  Transmission Date: 20111222
  Serious: No
  Sender: FDA-Public Use
  Company Number: None

PATIENT
  Age: 62 Year
  Sex: Female
  Weight: 90.6 kg

DRUGS (1)
  1. METHYLPREDNISOLONE [Suspect]
     Indication: INFUSION
     Dosage: 250 MG OTHER IV
     Route: 042
     Dates: start: 20110622, end: 20110729

REACTIONS (2)
  - ABNORMAL BEHAVIOUR [None]
  - MANIA [None]
